FAERS Safety Report 16341038 (Version 25)
Quarter: 2022Q3

REPORT INFORMATION
  Report Type: Report from Study
  Country: JP (occurrence: JP)
  Receive Date: 20190522
  Receipt Date: 20220805
  Transmission Date: 20221027
  Serious: Yes (Hospitalization, Other)
  Sender: FDA-Public Use
  Company Number: JP-ONO-2019JP017747

PATIENT
  Age: 63 Year
  Sex: Male
  Weight: 49.7 kg

DRUGS (24)
  1. ETELCALCETIDE [Suspect]
     Active Substance: ETELCALCETIDE
     Indication: Hyperparathyroidism secondary
     Dosage: 5 MILLIGRAM, 3 TIMES/WK
     Route: 010
     Dates: start: 20181001, end: 20200325
  2. ETELCALCETIDE [Suspect]
     Active Substance: ETELCALCETIDE
     Dosage: 10 MILLIGRAM, 3 TIMES/WK
     Route: 010
     Dates: start: 20200327, end: 20200701
  3. ETELCALCETIDE [Suspect]
     Active Substance: ETELCALCETIDE
     Dosage: 5 MILLIGRAM, 3 TIMES/WK
     Route: 010
     Dates: start: 20210303, end: 20210804
  4. ETELCALCETIDE [Suspect]
     Active Substance: ETELCALCETIDE
     Dosage: 2.5 MILLIGRAM, 3 TIMES/WK
     Route: 010
     Dates: start: 20210806
  5. IOMERON [Suspect]
     Active Substance: IOMEPROL
     Indication: Product used for unknown indication
     Dosage: UNK
     Route: 065
  6. TRAMCET [Suspect]
     Active Substance: ACETAMINOPHEN\TRAMADOL
     Indication: Product used for unknown indication
     Dosage: UNK
     Route: 065
  7. ZOLPIDEM TARTRATE [Suspect]
     Active Substance: ZOLPIDEM TARTRATE
     Indication: Product used for unknown indication
     Dosage: UNK
     Route: 048
  8. DARBEPOETIN ALFA [Concomitant]
     Active Substance: DARBEPOETIN ALFA
     Dosage: 10 MICROGRAM, QWK
     Route: 065
     Dates: end: 20180706
  9. DARBEPOETIN ALFA [Concomitant]
     Active Substance: DARBEPOETIN ALFA
     Dosage: 15 MICROGRAM, QWK
     Route: 065
     Dates: start: 20180713, end: 20180817
  10. DARBEPOETIN ALFA [Concomitant]
     Active Substance: DARBEPOETIN ALFA
     Dosage: 20 MICROGRAM, QWK
     Route: 065
     Dates: start: 20180824, end: 20181116
  11. DARBEPOETIN ALFA [Concomitant]
     Active Substance: DARBEPOETIN ALFA
     Dosage: 30 MICROGRAM, QWK
     Route: 065
     Dates: start: 20181123, end: 20190816
  12. EPOETIN ALFA [Concomitant]
     Active Substance: ERYTHROPOIETIN
     Dosage: 9000 INTERNATIONAL UNIT, QWK
     Route: 065
     Dates: start: 20200702, end: 20210614
  13. SODIUM FERROUS CITRATE [Concomitant]
     Active Substance: SODIUM FERROUS CITRATE
     Dosage: 50 MILLIGRAM, QD
     Route: 048
     Dates: end: 20180731
  14. OXAROL [Concomitant]
     Active Substance: MAXACALCITOL
     Dosage: 5 MICROGRAM, 3 TIMES/WK
     Route: 042
     Dates: start: 201806, end: 20200622
  15. OXAROL [Concomitant]
     Active Substance: MAXACALCITOL
     Dosage: 5 MICROGRAM, 3 TIMES/WK
     Route: 042
     Dates: start: 20210414, end: 20220214
  16. OXAROL [Concomitant]
     Active Substance: MAXACALCITOL
     Dosage: 2.5 MICROGRAM, 3 TIMES/WK
     Route: 042
     Dates: start: 20220216
  17. DARBEPOETIN ALFA [Concomitant]
     Active Substance: DARBEPOETIN ALFA
     Dosage: 20 MICROGRAM, QWK
     Route: 065
     Dates: start: 20200124, end: 20200626
  18. DARBEPOETIN ALFA [Concomitant]
     Active Substance: DARBEPOETIN ALFA
     Dosage: 60 MICROGRAM, QWK
     Route: 065
     Dates: start: 20200702, end: 20200918
  19. DARBEPOETIN ALFA [Concomitant]
     Active Substance: DARBEPOETIN ALFA
     Dosage: 40 MICROGRAM, QWK
     Route: 065
     Dates: start: 20200925, end: 20210702
  20. DARBEPOETIN ALFA [Concomitant]
     Active Substance: DARBEPOETIN ALFA
     Dosage: 20 MICROGRAM, QWK
     Route: 065
     Dates: start: 20210709, end: 20210730
  21. DARBEPOETIN ALFA [Concomitant]
     Active Substance: DARBEPOETIN ALFA
     Dosage: 15 MICROGRAM, QWK
     Route: 065
     Dates: start: 20210806, end: 20211022
  22. DARBEPOETIN ALFA [Concomitant]
     Active Substance: DARBEPOETIN ALFA
     Dosage: 10 MICROGRAM, QWK
     Route: 065
     Dates: start: 20211029, end: 20220408
  23. DARBEPOETIN ALFA [Concomitant]
     Active Substance: DARBEPOETIN ALFA
     Dosage: 15 MICROGRAM, QWK
     Route: 065
     Dates: start: 20220415
  24. Fesin [Concomitant]
     Dosage: 40 MILLIGRAM, QWK
     Route: 065

REACTIONS (18)
  - Arthritis bacterial [Recovered/Resolved]
  - Patella fracture [Recovered/Resolved]
  - Bile duct stone [Recovered/Resolved]
  - Cholangitis [Recovered/Resolved]
  - Sternal fracture [Recovered/Resolved]
  - Traumatic haemothorax [Recovered/Resolved]
  - Fall [Unknown]
  - Patella fracture [Recovered/Resolved]
  - Fall [Unknown]
  - Aortic valve stenosis [Recovered/Resolved]
  - Rib fracture [Recovered/Resolved]
  - Shunt occlusion [Recovered/Resolved]
  - Shunt stenosis [Recovered/Resolved]
  - Shunt occlusion [Recovered/Resolved]
  - Fall [Recovered/Resolved]
  - Blood pressure decreased [Recovered/Resolved]
  - Rash [Recovered/Resolved]
  - Shunt stenosis [Recovered/Resolved]

NARRATIVE: CASE EVENT DATE: 20190121
